FAERS Safety Report 20483919 (Version 1)
Quarter: 2022Q1

REPORT INFORMATION
  Report Type: Spontaneous
  Country: PL (occurrence: PL)
  Receive Date: 20220217
  Receipt Date: 20220217
  Transmission Date: 20220423
  Serious: Yes (Hospitalization)
  Sender: FDA-Public Use
  Company Number: PL-NOVARTISPH-NVSC2022PL034799

PATIENT
  Age: 68 Year
  Sex: Female

DRUGS (28)
  1. PACLITAXEL [Suspect]
     Active Substance: PACLITAXEL
     Indication: Endometrial cancer
     Dosage: 175 MG/M2, ONCE/SINGLE
     Route: 042
     Dates: start: 20210819, end: 20210819
  2. PACLITAXEL [Suspect]
     Active Substance: PACLITAXEL
     Dosage: 175 MG/M2, ONCE/SINGLE
     Route: 042
     Dates: start: 20211104, end: 20211104
  3. PACLITAXEL [Suspect]
     Active Substance: PACLITAXEL
     Dosage: 175 MG/M2, ONCE/SINGLE
     Route: 042
     Dates: start: 20220113, end: 20220113
  4. PACLITAXEL [Suspect]
     Active Substance: PACLITAXEL
     Dosage: 175 MG/M2, ONCE/SINGLE
     Route: 042
     Dates: start: 20211014, end: 20211014
  5. PACLITAXEL [Suspect]
     Active Substance: PACLITAXEL
     Dosage: 175 MG/M2, ONCE/SINGLE
     Route: 042
     Dates: start: 20211216, end: 20211216
  6. PACLITAXEL [Suspect]
     Active Substance: PACLITAXEL
     Dosage: 175 MG/M2, ONCE/SINGLE
     Route: 042
     Dates: start: 20210708, end: 20210708
  7. CARBOPLATIN [Suspect]
     Active Substance: CARBOPLATIN
     Indication: Endometrial cancer
     Dosage: 900 MG, ONCE/SINGLE
     Route: 042
     Dates: start: 20211216, end: 20211216
  8. CARBOPLATIN [Suspect]
     Active Substance: CARBOPLATIN
     Dosage: 900 MG, ONCE/SINGLE
     Route: 042
     Dates: start: 20210708, end: 20210708
  9. CARBOPLATIN [Suspect]
     Active Substance: CARBOPLATIN
     Dosage: 900 MG, ONCE/SINGLE
     Route: 042
     Dates: start: 20211104, end: 20211104
  10. CARBOPLATIN [Suspect]
     Active Substance: CARBOPLATIN
     Dosage: 900 MG, ONCE/SINGLE
     Route: 042
     Dates: start: 20210819, end: 20210819
  11. CARBOPLATIN [Suspect]
     Active Substance: CARBOPLATIN
     Dosage: 900 MG, ONCE/SINGLE
     Route: 042
     Dates: start: 20211014, end: 20211014
  12. CARBOPLATIN [Suspect]
     Active Substance: CARBOPLATIN
     Dosage: 900 MG, ONCE/SINGLE
     Route: 042
     Dates: start: 20220113, end: 20220113
  13. OLAPARIB [Suspect]
     Active Substance: OLAPARIB
     Indication: Endometrial cancer
     Dosage: UNK
     Route: 048
  14. DURVALUMAB [Suspect]
     Active Substance: DURVALUMAB
     Indication: Endometrial cancer
     Dosage: 1120 MG, ONCE/SINGLE
     Route: 042
     Dates: start: 20211014, end: 20211014
  15. DURVALUMAB [Suspect]
     Active Substance: DURVALUMAB
     Dosage: 1120 MG, ONCE/SINGLE
     Route: 042
     Dates: start: 20211216, end: 20211216
  16. DURVALUMAB [Suspect]
     Active Substance: DURVALUMAB
     Dosage: 1120 MG, ONCE/SINGLE
     Route: 042
     Dates: start: 20211104, end: 20211104
  17. DURVALUMAB [Suspect]
     Active Substance: DURVALUMAB
     Dosage: 1120 MG, ONCE/SINGLE
     Route: 042
     Dates: start: 20210708, end: 20210708
  18. DURVALUMAB [Suspect]
     Active Substance: DURVALUMAB
     Dosage: 1120 MG, ONCE/SINGLE
     Route: 042
     Dates: start: 20220113, end: 20220113
  19. DURVALUMAB [Suspect]
     Active Substance: DURVALUMAB
     Dosage: 1120 MG, ONCE/SINGLE
     Route: 042
     Dates: start: 20210819, end: 20210819
  20. BISOPROLOL [Concomitant]
     Active Substance: BISOPROLOL
     Indication: Cardiac failure chronic
     Dosage: 5 MG, Q12H
     Route: 048
     Dates: start: 20210829
  21. BISOPROLOL [Concomitant]
     Active Substance: BISOPROLOL
     Indication: Atrial fibrillation
  22. THIOGEMMA [Concomitant]
     Indication: Neuropathy peripheral
     Route: 048
     Dates: start: 202012
  23. ROSUVASTATIN [Concomitant]
     Active Substance: ROSUVASTATIN
     Indication: Hypercholesterolaemia
     Dosage: 10 MG, QD
     Route: 048
     Dates: start: 201006
  24. TELMISARTAN [Concomitant]
     Active Substance: TELMISARTAN
     Indication: Hypertension
     Dosage: 80 MG, QD
     Route: 048
     Dates: start: 2000
  25. ALLOPURINOL [Concomitant]
     Active Substance: ALLOPURINOL
     Indication: Gout
     Dosage: 100 MG, QD
     Route: 048
     Dates: start: 202012
  26. GLICLAZIDE [Concomitant]
     Active Substance: GLICLAZIDE
     Indication: Type 2 diabetes mellitus
     Dosage: 30 MG, QD
     Route: 048
     Dates: start: 2000
  27. METFORMIN [Concomitant]
     Active Substance: METFORMIN HYDROCHLORIDE
     Indication: Type 2 diabetes mellitus
     Dosage: 1500 MG, Q12H
     Route: 048
     Dates: start: 2000
  28. NEBIVOLOL [Concomitant]
     Active Substance: NEBIVOLOL
     Indication: Hypertension
     Dosage: 5 MG, QD
     Route: 048
     Dates: start: 2000

REACTIONS (1)
  - Anaemia [Recovered/Resolved]

NARRATIVE: CASE EVENT DATE: 20220113
